FAERS Safety Report 19773438 (Version 2)
Quarter: 2021Q3

REPORT INFORMATION
  Report Type: Report from Study
  Country: FR (occurrence: FR)
  Receive Date: 20210901
  Receipt Date: 20210924
  Transmission Date: 20211014
  Serious: Yes (Hospitalization, Other)
  Sender: FDA-Public Use
  Company Number: FR-BRISTOL-MYERS SQUIBB COMPANY-BMS-2021-047619

PATIENT
  Age: 65 Year
  Sex: Male
  Weight: 62 kg

DRUGS (4)
  1. NIVOLUMAB [Suspect]
     Active Substance: NIVOLUMAB
     Indication: THYMOMA
     Dosage: 240 MILLIGRAM, Q2WK
     Route: 042
     Dates: start: 20210503, end: 20210601
  2. IPILIMUMAB [Suspect]
     Active Substance: IPILIMUMAB
     Indication: MALIGNANT NEOPLASM OF THYMUS
  3. IPILIMUMAB [Suspect]
     Active Substance: IPILIMUMAB
     Indication: THYMOMA
     Dosage: 62 MILLIGRAM (1 MG/KG), Q6WK
     Route: 042
     Dates: start: 20210503, end: 20210601
  4. NIVOLUMAB [Suspect]
     Active Substance: NIVOLUMAB
     Indication: MALIGNANT NEOPLASM OF THYMUS

REACTIONS (1)
  - Herpes pharyngitis [Recovered/Resolved]

NARRATIVE: CASE EVENT DATE: 20210508
